FAERS Safety Report 9262405 (Version 1)
Quarter: 2013Q2

REPORT INFORMATION
  Report Type: Spontaneous
  Country: US (occurrence: None)
  Receive Date: 20130425
  Receipt Date: 20130425
  Transmission Date: 20140414
  Serious: No
  Sender: FDA-Public Use
  Company Number: None

PATIENT
  Age: 59 Year
  Sex: Female

DRUGS (1)
  1. COPAXONE [Suspect]
     Indication: MULTIPLE SCLEROSIS
     Route: 058
     Dates: start: 20090527, end: 20130205

REACTIONS (6)
  - Palpitations [None]
  - Muscle spasms [None]
  - Gait disturbance [None]
  - Diarrhoea [None]
  - Nausea [None]
  - Chills [None]
